FAERS Safety Report 10013358 (Version 1)
Quarter: 2014Q1

REPORT INFORMATION
  Report Type: Spontaneous
  Country: US (occurrence: US)
  Receive Date: 20140314
  Receipt Date: 20140314
  Transmission Date: 20141002
  Serious: No
  Sender: FDA-Public Use
  Company Number: US-PFIZER INC-2014074759

PATIENT
  Age: 57 Year
  Sex: Female
  Weight: 57.6 kg

DRUGS (1)
  1. LYRICA [Suspect]
     Dosage: 100 MG, 2X/DAY
     Dates: start: 2005

REACTIONS (2)
  - Skin ulcer [Unknown]
  - Skin lesion [Unknown]
